FAERS Safety Report 6102476-0 (Version None)
Quarter: 2009Q1

REPORT INFORMATION
  Report Type: 
  Country: None (occurrence: None)
  Receive Date: 20090304
  Receipt Date: 20090220
  Transmission Date: 20090719
  Serious: Yes (Death, Hospitalization)
  Sender: FDA-Public Use
  Company Number: US-BRISTOL-MYERS SQUIBB COMPANY-14428668

PATIENT
  Age: 64 Year
  Sex: Male

DRUGS (35)
  1. IPILIMUMAB [Suspect]
     Indication: LUNG NEOPLASM MALIGNANT
     Dosage: THIRD DOSE RECEIVED ON 20-NOV-2008
     Route: 042
     Dates: start: 20080918, end: 20080918
  2. TAXOL [Suspect]
     Indication: LUNG NEOPLASM MALIGNANT
     Dosage: 5TH DOSE RECEIVED ON 15-JAN-2009
     Route: 042
     Dates: start: 20080918, end: 20080918
  3. CARBOPLATIN [Suspect]
     Indication: LUNG NEOPLASM MALIGNANT
     Dosage: 1 DOSAGE FORM - 6 AUC; 5TH DOSE RECEIVED ON 15-JAN-2009
     Route: 042
     Dates: start: 20080918, end: 20080918
  4. PLACEBO [Suspect]
     Indication: LUNG NEOPLASM MALIGNANT
     Dosage: 3RD DOSE RECEIVED ON 20-NOV-2008
     Route: 042
     Dates: start: 20080918, end: 20080918
  5. COREG [Suspect]
     Indication: CARDIAC FAILURE CONGESTIVE
     Dosage: TAKEN 125MG FROM 03DEC2008
     Route: 048
     Dates: start: 20060101
  6. COREG [Suspect]
     Indication: HYPERTENSION
     Dosage: TAKEN 125MG FROM 03DEC2008
     Route: 048
     Dates: start: 20060101
  7. PIPERACILLIN [Suspect]
     Dates: start: 20081128
  8. LEVOFLOXACIN [Suspect]
     Dates: start: 20081128
  9. FLUCONAZOLE [Suspect]
     Dates: start: 20081219, end: 20081224
  10. VANCOMYCIN [Suspect]
     Dates: start: 20081219
  11. FUROSEMIDE [Suspect]
     Dosage: ALSO GIVEN IN NOV-2008 AND DEC-2008
     Dates: start: 20081009
  12. HYDROCORTISONE ACETATE [Concomitant]
     Indication: RASH
     Route: 062
     Dates: start: 20080925
  13. PROCRIT [Concomitant]
     Indication: ANAEMIA
     Dosage: 1 DOSAGEFORM=20000 UNITS. ROUTE=SC/IV
     Dates: start: 20081021
  14. QUINAPRIL HCL + HCTZ [Concomitant]
     Indication: HYPERTENSION
     Dosage: 1 DOSAGEFORM=20-12.5MG
     Route: 048
     Dates: start: 20060101
  15. NOVOLIN 70/30 [Concomitant]
     Indication: DIABETES MELLITUS
     Dosage: 1 DOSAGEFORM= 40 UNITS 9AM, 22 UNITS 9PM
     Route: 058
     Dates: start: 20080818
  16. ASPIRIN [Concomitant]
     Indication: PROPHYLAXIS
     Dosage: 325MG / DAY FROM 03DEC2006
     Route: 048
     Dates: start: 20061203
  17. SENOKOT [Concomitant]
     Indication: CONSTIPATION
     Dosage: 1 DOSAGEFORM=1-2 TABS
     Route: 048
     Dates: start: 20080801
  18. BENADRYL [Concomitant]
     Indication: PREMEDICATION
     Route: 042
     Dates: start: 20080918
  19. CIMETIDINE [Concomitant]
     Indication: PREMEDICATION
     Route: 042
     Dates: start: 20080918
  20. DECADRON [Concomitant]
     Indication: PREMEDICATION
     Route: 042
     Dates: start: 20080918
  21. ALOXI [Concomitant]
     Indication: PREMEDICATION
     Route: 042
     Dates: start: 20080918
  22. ZOFRAN [Concomitant]
     Indication: NAUSEA
     Route: 048
     Dates: start: 20080923
  23. PREDNISONE [Concomitant]
     Indication: DIZZINESS
     Dosage: 20MG,DAILY,09NOV08-17NOV08.QOD,18NOV08-24NOV08
     Route: 048
     Dates: start: 20081109, end: 20081124
  24. PREDNISONE [Concomitant]
     Indication: VISION BLURRED
     Dosage: 20MG,DAILY,09NOV08-17NOV08.QOD,18NOV08-24NOV08
     Route: 048
     Dates: start: 20081109, end: 20081124
  25. NEULASTA [Concomitant]
     Indication: PROPHYLAXIS
     Route: 058
     Dates: start: 20081121
  26. COMPAZINE [Concomitant]
     Indication: NAUSEA
     Route: 048
     Dates: start: 20081122
  27. IMODIUM [Concomitant]
     Indication: DIARRHOEA
     Route: 048
     Dates: start: 20081122, end: 20081123
  28. PYRIDIUM [Concomitant]
     Indication: URINARY TRACT INFECTION
     Route: 048
     Dates: start: 20081211, end: 20081214
  29. LISINOPRIL [Concomitant]
     Indication: HYPERTENSION
     Route: 048
     Dates: start: 20081203
  30. CALTRATE VITAMINE D3 [Concomitant]
     Indication: HYPOCALCAEMIA
     Route: 048
     Dates: start: 20081203
  31. LANTUS [Concomitant]
     Indication: DIABETES MELLITUS
     Dosage: 1 DOSAGE FORM=15UNITS AT 9AM AND 10UNITS AT 9 PM
     Route: 058
     Dates: start: 20081203
  32. NOVOLOG [Concomitant]
     Indication: DIABETES MELLITUS
     Dosage: 1 DOSAGE FORM=70/30UNITS 9AM
     Route: 058
     Dates: start: 20081203
  33. LORTAB [Concomitant]
     Indication: BACK PAIN
     Dosage: 1 DF= 5/375MG
     Route: 048
     Dates: start: 20080916
  34. LIPITOR [Concomitant]
     Indication: PROPHYLAXIS
     Route: 048
     Dates: start: 20061203
  35. K-DUR [Concomitant]
     Indication: PROPHYLAXIS
     Route: 048
     Dates: start: 20061220

REACTIONS (6)
  - ERYTHEMA MULTIFORME [None]
  - HYPOCALCAEMIA [None]
  - HYPOGLYCAEMIA [None]
  - METABOLIC ACIDOSIS [None]
  - PNEUMONIA [None]
  - SEPSIS [None]
